FAERS Safety Report 4788192-6 (Version None)
Quarter: 2005Q3

REPORT INFORMATION
  Report Type: 
  Country: None (occurrence: None)
  Receive Date: 20050920
  Receipt Date: 20050510
  Transmission Date: 20060218
  Serious: Yes (Other)
  Sender: FDA-Public Use
  Company Number: PHEH2005US02215

PATIENT
  Age: 62 Year
  Sex: Female
  Weight: 55.3 kg

DRUGS (3)
  1. DIOVAN [Suspect]
     Indication: HYPERTENSION
     Dosage: 80 MG, QHS, ORAL
     Route: 048
     Dates: start: 20050214
  2. CHLORTAB(CHLORPHENAMINE MALEATE) [Suspect]
     Indication: HYPERSENSITIVITY
     Dosage: ORAL
     Route: 048
     Dates: start: 20050217
  3. CLONIDINE [Concomitant]

REACTIONS (1)
  - HYPERTENSION [None]
